FAERS Safety Report 15851913 (Version 1)
Quarter: 2019Q1

REPORT INFORMATION
  Report Type: Report from Study
  Country: CL (occurrence: CL)
  Receive Date: 20190122
  Receipt Date: 20190122
  Transmission Date: 20190417
  Serious: Yes (Death, Other)
  Sender: FDA-Public Use
  Company Number: CL-BAUSCH-BL-2019-001744

PATIENT
  Age: 91 Year
  Sex: Female

DRUGS (1)
  1. NORMIX [Suspect]
     Active Substance: RIFAXIMIN
     Indication: PRODUCT USED FOR UNKNOWN INDICATION
     Route: 048

REACTIONS (2)
  - Haematemesis [Unknown]
  - Death [Fatal]
